FAERS Safety Report 4384696-9 (Version None)
Quarter: 2004Q2

REPORT INFORMATION
  Report Type: 
  Country: None (occurrence: None)
  Receive Date: 20040625
  Receipt Date: 20030820
  Transmission Date: 20050107
  Serious: Yes (Death, Other)
  Sender: FDA-Public Use
  Company Number: PHBS2003JP08858

PATIENT
  Age: 65 Year
  Sex: Male

DRUGS (4)
  1. NEUPOGEN [Concomitant]
  2. GLEEVEC [Suspect]
     Indication: CHRONIC MYELOID LEUKAEMIA
     Route: 048
     Dates: start: 20020801
  3. GLEEVEC [Suspect]
     Dosage: 400 MG/D
     Route: 048
     Dates: start: 20020101, end: 20020301
  4. GLEEVEC [Suspect]
     Dosage: 200 MG/D
     Route: 048
     Dates: start: 20020301

REACTIONS (4)
  - BLAST CRISIS IN MYELOGENOUS LEUKAEMIA [None]
  - BRONCHOPULMONARY ASPERGILLOSIS [None]
  - HEPATIC FAILURE [None]
  - PANCYTOPENIA [None]
